FAERS Safety Report 4868192-8 (Version None)
Quarter: 2005Q4

REPORT INFORMATION
  Report Type: 
  Country: None (occurrence: None)
  Receive Date: 20051229
  Receipt Date: 20051219
  Transmission Date: 20060501
  Serious: Yes (Death, Other)
  Sender: FDA-Public Use
  Company Number: CA-BRISTOL-MYERS SQUIBB COMPANY-13221643

PATIENT
  Age: 67 Year
  Sex: Male

DRUGS (4)
  1. CYCLOPHOSPHAMIDE [Suspect]
     Indication: B-CELL LYMPHOMA
  2. DOXORUBICIN HCL [Suspect]
     Indication: B-CELL LYMPHOMA
  3. RITUXIMAB [Suspect]
     Indication: B-CELL LYMPHOMA
  4. VINCRISTINE [Suspect]
     Indication: B-CELL LYMPHOMA

REACTIONS (2)
  - BACTERIAL INFECTION [None]
  - HEPATITIS B [None]
